FAERS Safety Report 21789229 (Version 1)
Quarter: 2022Q4

REPORT INFORMATION
  Report Type: Spontaneous
  Country: IT (occurrence: IT)
  Receive Date: 20221228
  Receipt Date: 20221228
  Transmission Date: 20230113
  Serious: Yes (Hospitalization)
  Sender: FDA-Public Use
  Company Number: IT-TEVA-2022-IT-2840415

PATIENT
  Age: 9 Year
  Sex: Female

DRUGS (1)
  1. AMOXICILLIN [Suspect]
     Active Substance: AMOXICILLIN
     Indication: Drug provocation test
     Dosage: 50 MG/KG DAILY; ADMINISTERED EVERY 30 MINUTES STARTING AT 1.5% OF THE REGULAR DOSE (25 MG/KG TWO TIM
     Route: 065

REACTIONS (1)
  - Enterocolitis [Recovering/Resolving]
